FAERS Safety Report 18840095 (Version 2)
Quarter: 2021Q1

REPORT INFORMATION
  Report Type: Report from Study
  Country: None (occurrence: US)
  Receive Date: 20210204
  Receipt Date: 20210225
  Transmission Date: 20210419
  Serious: Yes (Hospitalization, Other)
  Sender: FDA-Public Use
  Company Number: US-ABBVIE-21K-163-3736202-00

PATIENT
  Age: 44 Year
  Sex: Male
  Weight: 127.12 kg

DRUGS (7)
  1. HUMIRA [Suspect]
     Active Substance: ADALIMUMAB
     Indication: CROHN^S DISEASE
     Route: 058
     Dates: start: 2011, end: 2020
  2. HUMIRA [Suspect]
     Active Substance: ADALIMUMAB
     Indication: RHEUMATOID ARTHRITIS
     Dosage: DOSE INCREASED
     Route: 058
     Dates: start: 20210121
  3. OLMESARTAN MEDOXOMIL, AMLODIPINE AND HYDROCHLOROTHIAZIDE [Concomitant]
     Active Substance: AMLODIPINE\HYDROCHLOROTHIAZIDE\OLMESARTAN
     Indication: PRODUCT USED FOR UNKNOWN INDICATION
  4. ATOMOXETINE HCL [Concomitant]
     Active Substance: ATOMOXETINE HYDROCHLORIDE
     Indication: PRODUCT USED FOR UNKNOWN INDICATION
  5. EDARBI [Concomitant]
     Active Substance: AZILSARTAN KAMEDOXOMIL
     Indication: HYPERTENSION
  6. TRAMADOL HCL [Concomitant]
     Active Substance: TRAMADOL HYDROCHLORIDE
     Indication: PRODUCT USED FOR UNKNOWN INDICATION
  7. HUMIRA [Suspect]
     Active Substance: ADALIMUMAB
     Indication: PSORIASIS

REACTIONS (11)
  - Gastrointestinal infection [Unknown]
  - Wound [Recovering/Resolving]
  - Hypertension [Recovered/Resolved]
  - Proctalgia [Recovered/Resolved]
  - Cyst [Recovered/Resolved]
  - Wound abscess [Recovering/Resolving]
  - Intestinal perforation [Recovering/Resolving]
  - Anal fistula [Unknown]
  - Product dispensing error [Not Recovered/Not Resolved]
  - Pyrexia [Recovered/Resolved]
  - Anorectal swelling [Recovered/Resolved]

NARRATIVE: CASE EVENT DATE: 202101
